FAERS Safety Report 15313999 (Version 2)
Quarter: 2018Q3

REPORT INFORMATION
  Report Type: Spontaneous
  Country: US (occurrence: US)
  Receive Date: 20180824
  Receipt Date: 20180913
  Transmission Date: 20181010
  Serious: No
  Sender: FDA-Public Use
  Company Number: US-ROCHE-2172638

PATIENT
  Age: 28 Year
  Sex: Female
  Weight: 108.96 kg

DRUGS (7)
  1. VITAMIN C [Concomitant]
     Active Substance: ASCORBIC ACID
     Dosage: ONGOING: YES
     Route: 048
  2. BIOTIN [Concomitant]
     Active Substance: BIOTIN
     Dosage: ONGOING: YES
     Route: 048
  3. KEFLEX [Concomitant]
     Active Substance: CEPHALEXIN
  4. ELIQUIS [Concomitant]
     Active Substance: APIXABAN
     Indication: PULMONARY THROMBOSIS
  5. OCREVUS [Suspect]
     Active Substance: OCRELIZUMAB
     Indication: RELAPSING-REMITTING MULTIPLE SCLEROSIS
     Route: 042
     Dates: start: 201806
  6. CRANBERRY. [Concomitant]
     Active Substance: CRANBERRY
     Dosage: ONGOING: YES
     Route: 048
  7. VITAMIN A [Concomitant]
     Active Substance: VITAMIN A
     Dosage: ONGOING: YES
     Route: 048

REACTIONS (8)
  - Sinus headache [Recovered/Resolved]
  - Feeling hot [Unknown]
  - Dermatitis diaper [Not Recovered/Not Resolved]
  - Back pain [Recovered/Resolved]
  - Dyspnoea [Not Recovered/Not Resolved]
  - Wheezing [Not Recovered/Not Resolved]
  - Breast pain [Recovered/Resolved]
  - Heart rate increased [Recovered/Resolved]

NARRATIVE: CASE EVENT DATE: 20180816
